FAERS Safety Report 4427929-2 (Version None)
Quarter: 2004Q3

REPORT INFORMATION
  Report Type: 
  Country: None (occurrence: None)
  Receive Date: 20040813
  Receipt Date: 20040804
  Transmission Date: 20050211
  Serious: Yes (Other)
  Sender: FDA-Public Use
  Company Number: 2004227130US

PATIENT
  Age: 71 Year
  Sex: Female

DRUGS (2)
  1. PROVERA [Suspect]
     Dates: start: 19890615, end: 19980430
  2. PREMPRO [Suspect]
     Dates: start: 19980430, end: 20000401

REACTIONS (1)
  - BREAST CANCER FEMALE [None]
